FAERS Safety Report 6122808-7 (Version None)
Quarter: 2009Q1

REPORT INFORMATION
  Report Type: 
  Country: None (occurrence: None)
  Receive Date: 20090318
  Receipt Date: 20080819
  Transmission Date: 20090719
  Serious: No
  Sender: FDA-Public Use
  Company Number: US-AMGEN-KDL302529

PATIENT
  Sex: Female

DRUGS (5)
  1. NEULASTA [Suspect]
     Indication: CHEMOTHERAPY
     Dates: start: 20070628
  2. ARIXTRA [Concomitant]
  3. ALOXI [Concomitant]
  4. DEXAMETHASONE TAB [Concomitant]
  5. GEMZAR [Concomitant]

REACTIONS (2)
  - DEAFNESS [None]
  - HEART RATE INCREASED [None]
